FAERS Safety Report 16424298 (Version 1)
Quarter: 2019Q2

REPORT INFORMATION
  Report Type: Spontaneous
  Country: CN (occurrence: CN)
  Receive Date: 20190613
  Receipt Date: 20190613
  Transmission Date: 20190711
  Serious: Yes (Hospitalization, Other)
  Sender: FDA-Public Use
  Company Number: CN-ROCHE-2326230

PATIENT
  Age: 66 Year
  Sex: Male

DRUGS (14)
  1. GIMERACIL;OTERACIL POTASSIUM;TEGAFUR [Concomitant]
     Active Substance: GIMERACIL\OTERACIL\TEGAFUR
     Indication: RECTAL ADENOCARCINOMA
     Route: 065
     Dates: start: 20170630
  2. RALTITREXED [Concomitant]
     Active Substance: RALTITREXED
     Indication: METASTASES TO LUNG
  3. RALTITREXED [Concomitant]
     Active Substance: RALTITREXED
     Indication: RECTAL ADENOCARCINOMA
     Route: 065
     Dates: start: 20171024
  4. OXALIPLATIN. [Concomitant]
     Active Substance: OXALIPLATIN
     Indication: RECTAL ADENOCARCINOMA
     Route: 065
     Dates: start: 201603
  5. IRINOTECAN [Concomitant]
     Active Substance: IRINOTECAN
     Indication: RECTAL ADENOCARCINOMA
     Route: 065
     Dates: start: 20170630
  6. IRINOTECAN [Concomitant]
     Active Substance: IRINOTECAN
     Indication: METASTASES TO LUNG
  7. CETUXIMAB. [Concomitant]
     Active Substance: CETUXIMAB
     Indication: RECTAL ADENOCARCINOMA
     Route: 065
     Dates: start: 20170721
  8. CETUXIMAB. [Concomitant]
     Active Substance: CETUXIMAB
     Route: 065
     Dates: start: 20171124
  9. CAPECITABINE. [Suspect]
     Active Substance: CAPECITABINE
     Indication: RECTAL ADENOCARCINOMA
     Route: 048
     Dates: start: 201603
  10. OXALIPLATIN. [Concomitant]
     Active Substance: OXALIPLATIN
     Indication: METASTASES TO LUNG
  11. GIMERACIL;OTERACIL POTASSIUM;TEGAFUR [Concomitant]
     Active Substance: GIMERACIL\OTERACIL\TEGAFUR
     Route: 048
  12. CETUXIMAB. [Concomitant]
     Active Substance: CETUXIMAB
     Indication: METASTASES TO LUNG
     Route: 065
     Dates: start: 20171110
  13. CAPECITABINE. [Suspect]
     Active Substance: CAPECITABINE
     Indication: METASTASES TO LUNG
  14. GIMERACIL;OTERACIL POTASSIUM;TEGAFUR [Concomitant]
     Active Substance: GIMERACIL\OTERACIL\TEGAFUR
     Indication: METASTASES TO LUNG
     Route: 065
     Dates: start: 20170914

REACTIONS (17)
  - Disease recurrence [Unknown]
  - Asthenia [Unknown]
  - Intestinal fistula [Unknown]
  - Hepatic steatosis [Unknown]
  - Joint abscess [Unknown]
  - Rectal ulcer [Unknown]
  - Pericardial effusion [Unknown]
  - Herpes zoster [Unknown]
  - Pleural thickening [Unknown]
  - Benign prostatic hyperplasia [Unknown]
  - Intestinal obstruction [Unknown]
  - Infection [Unknown]
  - Pneumonitis [Unknown]
  - Radiation pneumonitis [Unknown]
  - Cholelithiasis [Unknown]
  - Hepatic cyst [Unknown]
  - Prostatic calcification [Unknown]
